FAERS Safety Report 4531875-3 (Version None)
Quarter: 2004Q4

REPORT INFORMATION
  Report Type: 
  Country: None (occurrence: None)
  Receive Date: 20041216
  Receipt Date: 20041213
  Transmission Date: 20050328
  Serious: Yes (Hospitalization, Other)
  Sender: FDA-Public Use
  Company Number: HQ9554117DEC2001

PATIENT
  Age: 56 Year
  Sex: Female

DRUGS (11)
  1. DIMETAPP [Suspect]
     Indication: SINUS DISORDER
     Dosage: ASS NEEDED, ORAL
     Route: 048
     Dates: start: 19950101, end: 19980101
  2. ENTEX LA (GUAIFENSIN/PHENYLPROPANOLAMINE  HYDROCHLORIDE) [Suspect]
     Indication: SINUS DISORDER
     Dosage: ORAL
     Route: 048
     Dates: start: 19950101, end: 19980101
  3. DIABETA [Concomitant]
  4. MICRONASE 9GLIBENCLAMIDE) [Concomitant]
  5. VENTOLIN [Concomitant]
  6. VENTOLIN [Concomitant]
  7. BUSPAR (BUSPIRONE HYDRCHLORIDE) [Concomitant]
  8. THEOPHYLLINE [Concomitant]
  9. ACTONEL (RISEDRONATE0 [Concomitant]
  10. CALCIUM (CALCIJM) [Concomitant]
  11. VITAMIN D (EROCALCIFEROL) [Concomitant]

REACTIONS (14)
  - ALPHA HAEMOLYTIC STREPTOCOCCAL INFECTION [None]
  - BLEPHAROSPASM [None]
  - BONE DISORDER [None]
  - BREATH SOUNDS DECREASED [None]
  - CEREBROVASCULAR ACCIDENT [None]
  - CIRCULATORY COLLAPSE [None]
  - COMA [None]
  - CONVULSION [None]
  - CSF CULTURE POSITIVE [None]
  - DEPRESSED LEVEL OF CONSCIOUSNESS [None]
  - DRUG SCREEN POSITIVE [None]
  - ENDOCARDITIS BACTERIAL [None]
  - FEMALE REPRODUCTIVE NEOPLASM [None]
  - MUSCLE SPASMS [None]
